FAERS Safety Report 6929846-2 (Version None)
Quarter: 2010Q3

REPORT INFORMATION
  Report Type: 
  Country: None (occurrence: None)
  Receive Date: 20100813
  Receipt Date: 20100802
  Transmission Date: 20110219
  Serious: Yes (Other)
  Sender: FDA-Public Use
  Company Number: 2010AP001610

PATIENT
  Age: 53 Year
  Sex: Female

DRUGS (1)
  1. OMEPRAZOLE [Suspect]
     Dosage: 20 MG;PO
     Route: 048
     Dates: start: 20100713, end: 20100721

REACTIONS (2)
  - BACTERIAL DISEASE CARRIER [None]
  - SKIN EXFOLIATION [None]
